FAERS Safety Report 4527579-3 (Version None)
Quarter: 2004Q4

REPORT INFORMATION
  Report Type: 
  Country: None (occurrence: None)
  Receive Date: 20041124
  Receipt Date: 20040917
  Transmission Date: 20050328
  Serious: No
  Sender: FDA-Public Use
  Company Number: 239371

PATIENT
  Age: 74 Year
  Sex: Male
  Weight: 87.5 kg

DRUGS (12)
  1. NOVOLOG MIX 70/30 [Suspect]
     Indication: INSULIN-REQUIRING TYPE II DIABETES MELLITUS
     Dosage: 8 IU, QD, SUBCUTANEOUS
     Route: 058
     Dates: start: 20040911
  2. ATENOLOL [Concomitant]
  3. ALTACE (RAMIPRIL) [Concomitant]
  4. FUROSEMIDE [Concomitant]
  5. SPIRONOLACTONE [Concomitant]
  6. METOLAZONE [Concomitant]
  7. LIPITOR [Concomitant]
  8. PERIOSTAT [Concomitant]
  9. CARBIDOPA W/LEVODOPA (CARBIDOPA) [Concomitant]
  10. COMTAN [Concomitant]
  11. B12 ^RECIP^ (CYANOCOBALAMIN-TANNIN COMPLEX) [Concomitant]
  12. KCL (POTASSIUM CHLORIDE) [Concomitant]

REACTIONS (1)
  - HYPOGLYCAEMIA [None]
